FAERS Safety Report 7711625 (Version 3)
Quarter: 2012Q4

REPORT INFORMATION
  Report Type: Spontaneous
  Country: GB (occurrence: None)
  Receive Date: 20101117
  Receipt Date: 20120904
  Transmission Date: 20130627
  Serious: Yes (Other)
  Sender: FDA-Public Use
  Company Number: 2010-3760

PATIENT
  Age: 43 Year
  Sex: Male
  Weight: 110 kg

DRUGS (2)
  1. LANREOTIDE ACETATE [Suspect]
     Indication: ACROMEGALY
     Dosage: 60MG (60 MG,1 IN 4 WK),SUBCUTANEOUS
     Route: 058
     Dates: start: 20090901
  2. NEBIDO [Concomitant]

REACTIONS (3)
  - DEEP VEIN THROMBOSIS [None]
  - DIARRHOEA [None]
  - INJECTION SITE PAIN [None]
